FAERS Safety Report 23948535 (Version 1)
Quarter: 2024Q2

REPORT INFORMATION
  Report Type: Spontaneous
  Country: IT (occurrence: IT)
  Receive Date: 20240607
  Receipt Date: 20240607
  Transmission Date: 20240715
  Serious: Yes (Other)
  Sender: FDA-Public Use
  Company Number: None

PATIENT
  Age: 68 Year
  Sex: Male
  Weight: 70 kg

DRUGS (1)
  1. KEYTRUDA [Suspect]
     Active Substance: PEMBROLIZUMAB
     Indication: Colon neoplasm
     Route: 042
     Dates: start: 20230904, end: 20231016

REACTIONS (1)
  - Immunotoxicity [Recovered/Resolved]

NARRATIVE: CASE EVENT DATE: 20231106
